FAERS Safety Report 13323956 (Version 2)
Quarter: 2017Q3

REPORT INFORMATION
  Report Type: Spontaneous
  Country: US (occurrence: US)
  Receive Date: 20170310
  Receipt Date: 20170815
  Transmission Date: 20171127
  Serious: Yes (Death, Hospitalization)
  Sender: FDA-Public Use
  Company Number: US-PFIZER INC-2017103418

PATIENT
  Age: 78 Year
  Sex: Female

DRUGS (2)
  1. OSEC [Concomitant]
     Indication: IDIOPATHIC PULMONARY FIBROSIS
     Dosage: UNK
  2. SILDENAFIL CITRATE. [Suspect]
     Active Substance: SILDENAFIL CITRATE
     Indication: PULMONARY HYPERTENSION
     Dosage: 20 MG, 3X/DAY

REACTIONS (3)
  - Pulmonary fibrosis [Fatal]
  - Pulmonary hypertension [Fatal]
  - Respiratory failure [Fatal]
